APPROVED DRUG PRODUCT: FLUVOXAMINE MALEATE
Active Ingredient: FLUVOXAMINE MALEATE
Strength: 100MG
Dosage Form/Route: CAPSULE, EXTENDED RELEASE;ORAL
Application: A091476 | Product #001 | TE Code: AB
Applicant: PH HEALTH LTD
Approved: Mar 13, 2013 | RLD: No | RS: No | Type: RX